FAERS Safety Report 9734293 (Version 3)
Quarter: 2014Q1

REPORT INFORMATION
  Report Type: Report from Study
  Country: CN (occurrence: CN)
  Receive Date: 20131205
  Receipt Date: 20140101
  Transmission Date: 20141002
  Serious: Yes (Other)
  Sender: FDA-Public Use
  Company Number: CN-ROCHE-1309889

PATIENT
  Sex: 0

DRUGS (6)
  1. BEVACIZUMAB [Suspect]
     Indication: COLORECTAL CANCER METASTATIC
     Route: 041
  2. FOLINIC ACID [Suspect]
     Indication: COLORECTAL CANCER METASTATIC
     Route: 065
  3. 5-FU [Suspect]
     Indication: COLORECTAL CANCER METASTATIC
     Dosage: 0.4 G/M2
     Route: 040
  4. 5-FU [Suspect]
     Dosage: 2.4 G/M2
     Route: 041
  5. IRINOTECAN [Suspect]
     Indication: COLORECTAL CANCER METASTATIC
     Route: 065
  6. OXALIPLATIN [Suspect]
     Indication: COLORECTAL CANCER METASTATIC
     Route: 041

REACTIONS (13)
  - Coma [Unknown]
  - Intestinal perforation [Unknown]
  - Alopecia [Unknown]
  - Vomiting [Unknown]
  - Diarrhoea [Unknown]
  - Leukopenia [Unknown]
  - Anaemia [Unknown]
  - Hypertension [Unknown]
  - Neurotoxicity [Unknown]
  - Proteinuria [Unknown]
  - Thrombocytopenia [Unknown]
  - Epistaxis [Unknown]
  - Bone marrow failure [Unknown]
